FAERS Safety Report 5166717-9 (Version None)
Quarter: 2006Q4

REPORT INFORMATION
  Report Type: 
  Country: None (occurrence: None)
  Receive Date: 20061207
  Receipt Date: 20060719
  Transmission Date: 20070319
  Serious: Yes (Hospitalization)
  Sender: FDA-Public Use
  Company Number: US-BRISTOL-MYERS SQUIBB COMPANY-13448923

PATIENT
  Age: 58 Year
  Sex: Male

DRUGS (1)
  1. DASATINIB [Suspect]
     Indication: LEUKAEMIA
     Route: 048
     Dates: start: 20060504, end: 20060714

REACTIONS (1)
  - PLEURAL EFFUSION [None]
